FAERS Safety Report 8786319 (Version 2)
Quarter: 2015Q2

REPORT INFORMATION
  Report Type: Report from Study
  Country: US (occurrence: US)
  Receive Date: 20120914
  Receipt Date: 20150407
  Transmission Date: 20150821
  Serious: Yes (Death)
  Sender: FDA-Public Use
  Company Number: US-ROCHE-1124992

PATIENT
  Age: 43 Year
  Sex: Male

DRUGS (11)
  1. PROTONIX (UNITED STATES) [Concomitant]
  2. AVASTIN [Suspect]
     Active Substance: BEVACIZUMAB
     Indication: GLIOBLASTOMA
  3. AVASTIN [Suspect]
     Active Substance: BEVACIZUMAB
     Indication: BRAIN NEOPLASM MALIGNANT
     Route: 042
     Dates: start: 20071221
  4. CARBOPLATIN. [Concomitant]
     Active Substance: CARBOPLATIN
     Route: 065
  5. KEPPRA [Concomitant]
     Active Substance: LEVETIRACETAM
     Indication: SEIZURE
  6. TEMODAR [Concomitant]
     Active Substance: TEMOZOLOMIDE
     Route: 065
  7. ZOFRAN [Concomitant]
     Active Substance: ONDANSETRON HYDROCHLORIDE
  8. THALIDOMIDE [Concomitant]
     Active Substance: THALIDOMIDE
  9. CAFFEINE. [Concomitant]
     Active Substance: CAFFEINE
  10. DILANTIN [Concomitant]
     Active Substance: PHENYTOIN
     Indication: SEIZURE
  11. DECADRON [Concomitant]
     Active Substance: DEXAMETHASONE

REACTIONS (23)
  - Hemiparesis [Unknown]
  - Death [Fatal]
  - Disease progression [Unknown]
  - Musculoskeletal stiffness [Unknown]
  - Facial paresis [Unknown]
  - Neutrophil count increased [Unknown]
  - Vomiting [Unknown]
  - Muscle twitching [Unknown]
  - Epistaxis [Unknown]
  - Nasal dryness [Unknown]
  - Gastrooesophageal reflux disease [Unknown]
  - General physical health deterioration [Unknown]
  - Off label use [Unknown]
  - Deep vein thrombosis [Unknown]
  - Headache [Unknown]
  - Somnolence [Unknown]
  - Anal pruritus [Unknown]
  - Affect lability [Unknown]
  - Irritability [Unknown]
  - Pain [Unknown]
  - Peripheral swelling [Unknown]
  - Neck pain [Unknown]
  - Haemorrhage [Unknown]

NARRATIVE: CASE EVENT DATE: 20080720
